FAERS Safety Report 9412470 (Version 1)
Quarter: 2013Q3

REPORT INFORMATION
  Report Type: Spontaneous
  Country: CN (occurrence: CN)
  Receive Date: 20130722
  Receipt Date: 20130722
  Transmission Date: 20140515
  Serious: Yes (Hospitalization, Other)
  Sender: FDA-Public Use
  Company Number: CN-BAYER-2013-084956

PATIENT
  Age: 81 Year
  Sex: Male

DRUGS (1)
  1. ACETYLSALICYLIC ACID({=100 MG) [Suspect]
     Dosage: 100 MG, QD

REACTIONS (10)
  - Haemorrhage [None]
  - Syncope [None]
  - Upper gastrointestinal haemorrhage [None]
  - Anaemia [None]
  - Diarrhoea [None]
  - Faeces discoloured [None]
  - Faeces discoloured [None]
  - Gastric ulcer [Recovering/Resolving]
  - Haematoma [Recovered/Resolved]
  - Atrial fibrillation [None]
